FAERS Safety Report 22292810 (Version 1)
Quarter: 2023Q2

REPORT INFORMATION
  Report Type: Spontaneous
  Country: US (occurrence: US)
  Receive Date: 20230508
  Receipt Date: 20230508
  Transmission Date: 20230721
  Serious: No
  Sender: FDA-Public Use
  Company Number: US-STRIDES ARCOLAB LIMITED-2022SP013744

PATIENT
  Age: 74 Year
  Sex: Male

DRUGS (3)
  1. VANCOMYCIN [Suspect]
     Active Substance: VANCOMYCIN
     Indication: Emphysematous cystitis
     Dosage: UNK
     Route: 065
  2. AMPICILLIN SODIUM\SULBACTAM SODIUM [Concomitant]
     Active Substance: AMPICILLIN SODIUM\SULBACTAM SODIUM
     Indication: Emphysematous cystitis
     Dosage: UNK
     Route: 065
  3. LINEZOLID [Concomitant]
     Active Substance: LINEZOLID
     Indication: Emphysematous cystitis
     Dosage: UNK
     Route: 065

REACTIONS (1)
  - Off label use [Unknown]
